FAERS Safety Report 10230386 (Version 1)
Quarter: 2014Q2

REPORT INFORMATION
  Report Type: Spontaneous
  Country: US (occurrence: US)
  Receive Date: 20140611
  Receipt Date: 20140611
  Transmission Date: 20141212
  Serious: No
  Sender: FDA-Public Use
  Company Number: US-INCYTE CORPORATION-2014IN000467

PATIENT
  Sex: Female

DRUGS (2)
  1. JAKAFI [Suspect]
     Indication: LEUKAEMIA
     Dosage: NOT SPECIFIED
     Route: 048
  2. JAKAFI [Suspect]
     Indication: FIBROSIS
     Dosage: NOT SPECIFIED
     Route: 048
     Dates: start: 2014

REACTIONS (4)
  - Abdominal distension [Unknown]
  - Malaise [Unknown]
  - Pain [Unknown]
  - Drug dose omission [Unknown]
